FAERS Safety Report 25063465 (Version 1)
Quarter: 2025Q1

REPORT INFORMATION
  Report Type: Spontaneous
  Country: US (occurrence: None)
  Receive Date: 20250310
  Receipt Date: 20250310
  Transmission Date: 20250408
  Serious: Yes (Life-Threatening)
  Sender: FDA-CTU
  Company Number: None

PATIENT
  Age: 78 Year
  Sex: Male

DRUGS (2)
  1. AMIODARONE HYDROCHLORIDE [Suspect]
     Active Substance: AMIODARONE HYDROCHLORIDE
     Indication: Atrial fibrillation
     Route: 042
     Dates: start: 20250215, end: 20250215
  2. METOPROLOL TARTRATE [Suspect]
     Active Substance: METOPROLOL TARTRATE
     Indication: Atrial fibrillation
     Dosage: FREQUENCY : 4 TIMES A DAY;?
     Route: 048
     Dates: start: 20250215, end: 20250215

REACTIONS (5)
  - Atrioventricular block [None]
  - Bradycardia [None]
  - Cardiac arrest [None]
  - Hyperhidrosis [None]
  - Dizziness [None]

NARRATIVE: CASE EVENT DATE: 20250215
